FAERS Safety Report 13554840 (Version 9)
Quarter: 2019Q4

REPORT INFORMATION
  Report Type: Report from Study
  Country: US (occurrence: US)
  Receive Date: 20170517
  Receipt Date: 20191210
  Transmission Date: 20200122
  Serious: Yes (Other)
  Sender: FDA-Public Use
  Company Number: US-ACTELION-A-NJ2016-139773

PATIENT
  Sex: Female
  Weight: 117.91 kg

DRUGS (9)
  1. RIOCIGUAT. [Suspect]
     Active Substance: RIOCIGUAT
     Indication: PRODUCT USED FOR UNKNOWN INDICATION
     Dosage: 2 MG, TID
     Route: 065
  2. TREPROSTINIL. [Suspect]
     Active Substance: TREPROSTINIL
     Dosage: 0.5 MG, BID
     Route: 065
  3. OPSUMIT [Suspect]
     Active Substance: MACITENTAN
     Indication: PULMONARY ARTERIAL HYPERTENSION
     Dosage: 10 MG, QD
     Route: 048
     Dates: start: 20160309
  4. TREPROSTINIL. [Suspect]
     Active Substance: TREPROSTINIL
     Indication: PRODUCT USED FOR UNKNOWN INDICATION
     Dosage: 0.75 MG, UNK
     Route: 065
  5. ORENITRAM [Suspect]
     Active Substance: TREPROSTINIL
     Indication: PRODUCT USED FOR UNKNOWN INDICATION
     Route: 065
  6. RIOCIGUAT. [Suspect]
     Active Substance: RIOCIGUAT
     Dosage: 1.5 MG, TID
     Route: 065
  7. OPSUMIT [Suspect]
     Active Substance: MACITENTAN
     Dosage: 10 MG, QD
     Route: 048
  8. TREPROSTINIL. [Suspect]
     Active Substance: TREPROSTINIL
     Dosage: 1 MG, UNK
     Route: 065
     Dates: start: 201608
  9. COUMADIN [Concomitant]
     Active Substance: WARFARIN SODIUM

REACTIONS (27)
  - Diarrhoea [Unknown]
  - Insomnia [Unknown]
  - Hypotension [Unknown]
  - Dyspnoea [Unknown]
  - Dyspepsia [Unknown]
  - Seasonal allergy [Unknown]
  - Sinus disorder [Unknown]
  - Stress [Unknown]
  - Oropharyngeal pain [Unknown]
  - Abdominal distension [Unknown]
  - International normalised ratio increased [Unknown]
  - Headache [Unknown]
  - Flatulence [Unknown]
  - Nasopharyngitis [Unknown]
  - Pain [Unknown]
  - Colitis [Unknown]
  - Gastrointestinal disorder [Unknown]
  - Abdominal pain upper [Unknown]
  - Dizziness [Not Recovered/Not Resolved]
  - Nausea [Unknown]
  - Osteoarthritis [Unknown]
  - Cough [Unknown]
  - Upper-airway cough syndrome [Unknown]
  - Malaise [Unknown]
  - Muscle spasms [Unknown]
  - Fluid retention [Unknown]
  - Gastrooesophageal reflux disease [Unknown]
